FAERS Safety Report 9291171 (Version 3)
Quarter: 2013Q2

REPORT INFORMATION
  Report Type: Report from Study
  Country: US (occurrence: US)
  Receive Date: 20130515
  Receipt Date: 20130528
  Transmission Date: 20140414
  Serious: Yes (Hospitalization, Other)
  Sender: FDA-Public Use
  Company Number: US-ABBOTT-13P-163-1087273-00

PATIENT
  Age: 33 Year
  Sex: Female

DRUGS (5)
  1. HUMIRA [Suspect]
     Indication: CROHN^S DISEASE
     Dates: start: 201301, end: 201301
  2. HUMIRA [Suspect]
     Dosage: 2 WEEKS AFTER INITIAL DOSE
     Dates: start: 201302, end: 201302
  3. HUMIRA [Suspect]
     Dosage: 2 WEEKS AFTER INITIAL DOSE
     Dates: start: 201302
  4. CALCIUM [Concomitant]
     Indication: MINERAL SUPPLEMENTATION
     Route: 048
  5. VITAMIN D3 [Concomitant]
     Indication: VITAMIN SUPPLEMENTATION
     Route: 048

REACTIONS (10)
  - Gastrointestinal inflammation [Recovering/Resolving]
  - Fistula [Recovered/Resolved]
  - Impaired healing [Recovered/Resolved]
  - Pyrexia [Not Recovered/Not Resolved]
  - Weight decreased [Not Recovered/Not Resolved]
  - Anorectal discomfort [Recovered/Resolved]
  - Fistula discharge [Recovered/Resolved]
  - Haemorrhage [Recovered/Resolved]
  - Proctalgia [Recovered/Resolved]
  - Crohn^s disease [Not Recovered/Not Resolved]
